FAERS Safety Report 19813321 (Version 2)
Quarter: 2021Q4

REPORT INFORMATION
  Report Type: Spontaneous
  Country: US (occurrence: US)
  Receive Date: 20210910
  Receipt Date: 20211007
  Transmission Date: 20220303
  Serious: Yes (Other)
  Sender: FDA-Public Use
  Company Number: US-INDIVIOR US-INDV-131059-2021

PATIENT

DRUGS (2)
  1. SUBLOCADE [Suspect]
     Active Substance: BUPRENORPHINE
     Indication: Drug dependence
     Dosage: 300 MILLIGRAM, QMO
     Route: 058
     Dates: start: 20210804
  2. SUBLOCADE [Suspect]
     Active Substance: BUPRENORPHINE
     Indication: Back pain

REACTIONS (4)
  - Psychotic behaviour [Recovered/Resolved]
  - Hallucination, visual [Not Recovered/Not Resolved]
  - Myoclonus [Not Recovered/Not Resolved]
  - Muscle spasms [Recovered/Resolved]

NARRATIVE: CASE EVENT DATE: 20210801
